FAERS Safety Report 13817384 (Version 1)
Quarter: 2017Q3

REPORT INFORMATION
  Report Type: Spontaneous
  Country: IT (occurrence: IT)
  Receive Date: 20170731
  Receipt Date: 20170731
  Transmission Date: 20171127
  Serious: Yes (Hospitalization)
  Sender: FDA-Public Use
  Company Number: PHHY2017IT110519

PATIENT
  Age: 7 Year
  Sex: Male

DRUGS (3)
  1. CYCLOPHOSPHAMIDE. [Concomitant]
     Active Substance: CYCLOPHOSPHAMIDE
     Indication: BONE MARROW TRANSPLANT
     Dosage: 1200 MG, UNK
     Route: 065
     Dates: start: 20170624, end: 20170625
  2. TIOTEPA [Concomitant]
     Active Substance: THIOTEPA
     Indication: BONE MARROW TRANSPLANT REJECTION
     Dosage: 160 MG, UNK
     Route: 042
     Dates: start: 20170623, end: 20170623
  3. VORICONAZOLE. [Suspect]
     Active Substance: VORICONAZOLE
     Indication: FUNGAL INFECTION
     Route: 048
     Dates: start: 20170525, end: 20170621

REACTIONS (1)
  - Thermal burn [Recovering/Resolving]

NARRATIVE: CASE EVENT DATE: 20170705
